FAERS Safety Report 8352042-1 (Version None)
Quarter: 2012Q2

REPORT INFORMATION
  Report Type: 
  Country: None (occurrence: None)
  Receive Date: 20120509
  Receipt Date: 20120509
  Transmission Date: 20120825
  Serious: Yes (Other)
  Sender: FDA-Public Use
  Company Number: None

PATIENT
  Sex: Male
  Weight: 106.1417 kg

DRUGS (2)
  1. BUPROPION HCL [Suspect]
     Indication: DEPRESSION
     Dosage: 150 MG BID PO
     Route: 048
     Dates: start: 20110412, end: 20120411
  2. SERTRALINE HYDROCHLORIDE [Suspect]
     Indication: DEPRESSION
     Dosage: 100 MG DAILY PO
     Route: 048
     Dates: start: 20110412, end: 20120411

REACTIONS (3)
  - PRODUCT QUALITY ISSUE [None]
  - PRODUCT COUNTERFEIT [None]
  - DEPRESSION [None]
